FAERS Safety Report 17741009 (Version 1)
Quarter: 2020Q2

REPORT INFORMATION
  Report Type: Spontaneous
  Country: US (occurrence: US)
  Receive Date: 20200504
  Receipt Date: 20200504
  Transmission Date: 20200714
  Serious: Yes (Life-Threatening, Hospitalization, Other)
  Sender: FDA-Public Use
  Company Number: US-MYLANLABS-2020M1043484

PATIENT
  Sex: Female

DRUGS (3)
  1. SIROLIMUS. [Suspect]
     Active Substance: SIROLIMUS
     Indication: IMMUNOSUPPRESSANT DRUG THERAPY
     Route: 065
  2. MYCOPHENOLATE MOFETIL. [Suspect]
     Active Substance: MYCOPHENOLATE MOFETIL
     Indication: IMMUNOSUPPRESSANT DRUG THERAPY
     Dosage: UNK
     Route: 065
  3. PREDNISONE. [Suspect]
     Active Substance: PREDNISONE
     Indication: IMMUNOSUPPRESSANT DRUG THERAPY
     Dosage: UNK
     Route: 065

REACTIONS (11)
  - Pneumonia [Unknown]
  - Clostridium difficile infection [Unknown]
  - Mouth ulceration [Unknown]
  - Acute respiratory distress syndrome [Unknown]
  - Herpes simplex oesophagitis [Unknown]
  - Renal graft infection [Unknown]
  - Herpes simplex [Unknown]
  - Q fever [Unknown]
  - Aortic arteriosclerosis [Unknown]
  - Aortic valve incompetence [Unknown]
  - Endocarditis Q fever [Unknown]
